FAERS Safety Report 24133088 (Version 1)
Quarter: 2024Q3

REPORT INFORMATION
  Report Type: Spontaneous
  Country: US (occurrence: None)
  Receive Date: 20240723
  Receipt Date: 20240723
  Transmission Date: 20241016
  Serious: No
  Sender: Public
  Company Number: None

PATIENT
  Age: 23 Year
  Sex: Female

DRUGS (3)
  1. VIGABATRIN [Suspect]
     Active Substance: VIGABATRIN
     Indication: Tuberous sclerosis complex
     Dosage: FREQUENCY : TWICE A DAY;?
     Route: 048
     Dates: start: 201906
  2. EVEROLIMUS [Concomitant]
     Active Substance: EVEROLIMUS
  3. SABRIL [Concomitant]
     Active Substance: VIGABATRIN

REACTIONS (2)
  - Emergency care [None]
  - Therapy interrupted [None]

NARRATIVE: CASE EVENT DATE: 20240719
